FAERS Safety Report 6774710-5 (Version None)
Quarter: 2010Q2

REPORT INFORMATION
  Report Type: 
  Country: None (occurrence: None)
  Receive Date: 20100617
  Receipt Date: 20100607
  Transmission Date: 20101027
  Serious: Yes (Other)
  Sender: FDA-Public Use
  Company Number: GR-GENZYME-CLOF-1001001

PATIENT
  Age: 12 Year
  Sex: Female

DRUGS (3)
  1. EVOLTRA [Suspect]
     Indication: ACUTE LYMPHOCYTIC LEUKAEMIA
     Dosage: 52 MG/M2, QDX5
     Route: 042
  2. EVOLTRA [Suspect]
     Dosage: 52 MG/M2, QDX5
     Route: 042
  3. EVOLTRA [Suspect]
     Dosage: 52 MG/M2, QDX5
     Route: 042

REACTIONS (2)
  - HAEMATOTOXICITY [None]
  - TRANSAMINASES INCREASED [None]
